FAERS Safety Report 8971961 (Version 1)
Quarter: 2012Q4

REPORT INFORMATION
  Report Type: 
  Country: TR (occurrence: TR)
  Receive Date: 20121219
  Receipt Date: 20121219
  Transmission Date: 20130627
  Serious: Yes (Other)
  Sender: FDA-Public Use
  Company Number: TR-MYLANLABS-2012S1025166

PATIENT
  Age: 39 Year
  Sex: Female

DRUGS (1)
  1. NIFEDIPINE [Suspect]
     Indication: PREMATURE LABOUR
     Route: 065

REACTIONS (5)
  - Pulmonary oedema [Recovering/Resolving]
  - Respiratory arrest [Recovering/Resolving]
  - Cardiac arrest [Recovering/Resolving]
  - Exposure during pregnancy [Recovered/Resolved]
  - Caesarean section [None]
